FAERS Safety Report 7615666-2 (Version None)
Quarter: 2011Q3

REPORT INFORMATION
  Report Type: 
  Country: None (occurrence: None)
  Receive Date: 20110711
  Receipt Date: 20110624
  Transmission Date: 20111222
  Serious: Yes (Hospitalization)
  Sender: FDA-Public Use
  Company Number: UTC-008164

PATIENT
  Age: 49 Year
  Sex: Female

DRUGS (2)
  1. DIURETICS (DIURETICS) [Concomitant]
  2. TYVASO [Suspect]
     Indication: PULMONARY ARTERIAL HYPERTENSION
     Dosage: 18-54 MIRCOGRAMS (4 IN 1 D), INHALATION
     Route: 055
     Dates: start: 20100203

REACTIONS (4)
  - WHEEZING [None]
  - DYSPNOEA [None]
  - THROAT TIGHTNESS [None]
  - FLUID RETENTION [None]
